FAERS Safety Report 25132738 (Version 1)
Quarter: 2025Q1

REPORT INFORMATION
  Report Type: Spontaneous
  Country: US (occurrence: US)
  Receive Date: 20250328
  Receipt Date: 20250328
  Transmission Date: 20250408
  Serious: Yes (Other)
  Sender: TEVA
  Company Number: US-TEVA-VS-3311363

PATIENT
  Age: 41 Year
  Sex: Male

DRUGS (1)
  1. AUSTEDO [Suspect]
     Active Substance: DEUTETRABENAZINE
     Indication: Huntington^s disease
     Dosage: 2 TABLETS BY MOUTH TWICE DAILY
     Route: 048
     Dates: start: 2019

REACTIONS (2)
  - Huntington^s disease [Unknown]
  - Bedridden [Unknown]
